FAERS Safety Report 20764497 (Version 1)
Quarter: 2022Q2

REPORT INFORMATION
  Report Type: Spontaneous
  Country: US (occurrence: US)
  Receive Date: 20220428
  Receipt Date: 20220428
  Transmission Date: 20220720
  Serious: Yes (Other)
  Sender: FDA-Public Use
  Company Number: US-BRISTOL-MYERS SQUIBB COMPANY-2022-027520

PATIENT
  Age: 75 Year
  Sex: Male

DRUGS (2)
  1. NIVOLUMAB [Suspect]
     Active Substance: NIVOLUMAB
     Indication: Metastatic malignant melanoma
     Dosage: THREE OF FOUR PLANNED DOSES
     Route: 065
  2. IPILIMUMAB [Suspect]
     Active Substance: IPILIMUMAB
     Indication: Metastatic malignant melanoma
     Dosage: RECEIVED THREE OF FOUR PLANNED DOSES
     Route: 065

REACTIONS (3)
  - Immune-mediated hypothyroidism [Recovered/Resolved]
  - Type 1 diabetes mellitus [Recovered/Resolved]
  - Colitis [Recovered/Resolved]
